FAERS Safety Report 5032623-3 (Version None)
Quarter: 2006Q2

REPORT INFORMATION
  Report Type: 
  Country: None (occurrence: None)
  Receive Date: 20060620
  Receipt Date: 20060612
  Transmission Date: 20061013
  Serious: Yes (Disabling, Other)
  Sender: FDA-Public Use
  Company Number: 2006075480

PATIENT
  Age: 62 Year
  Sex: Female
  Weight: 86.1834 kg

DRUGS (9)
  1. NORVASC [Suspect]
     Indication: HYPERTENSION
     Dosage: 10 MG (10 MG, 1 IN 1 D),
     Dates: start: 19940101
  2. ACCUPRIL [Suspect]
     Indication: HYPERTENSION
     Dosage: 20 MG (20 MG, 1 IN 1 D)
     Dates: start: 19940101
  3. NEURONTIN [Suspect]
     Indication: NEUROPATHY PERIPHERAL
     Dosage: 600 MG (300 MG, 2 IN 1 D),
     Dates: start: 20021201
  4. HYDROCHLOROTHIAZIDE [Suspect]
     Indication: HYPERTENSION
     Dosage: 25 MG (25 MG, 1 IN 1 D),
     Dates: start: 19940101
  5. EMARIL (ALL OTHER THERAPEUTIC PRODUCTS) [Concomitant]
  6. GLUCOPHAGE [Concomitant]
  7. VALIUM [Concomitant]
  8. DARVOCET [Concomitant]
  9. THEOPHYLLINE [Concomitant]

REACTIONS (7)
  - DEHYDRATION [None]
  - DIABETES MELLITUS [None]
  - ECONOMIC PROBLEM [None]
  - INSOMNIA [None]
  - MALAISE [None]
  - NEUROPATHY PERIPHERAL [None]
  - PNEUMONIA [None]
